FAERS Safety Report 13515781 (Version 5)
Quarter: 2018Q3

REPORT INFORMATION
  Report Type: Spontaneous
  Country: JP (occurrence: JP)
  Receive Date: 20170504
  Receipt Date: 20180921
  Transmission Date: 20181010
  Serious: Yes (Life-Threatening, Hospitalization, Disabling, Other)
  Sender: FDA-Public Use
  Company Number: JP-009507513-1705JPN000018J

PATIENT
  Age: 68 Year
  Sex: Male
  Weight: 58 kg

DRUGS (6)
  1. SOL?MELCORT [Concomitant]
     Active Substance: METHYLPREDNISOLONE SODIUM SUCCINATE
     Indication: ENCEPHALITIS AUTOIMMUNE
     Dosage: 1 G, TID
     Route: 051
     Dates: start: 20170421, end: 20170423
  2. PREDONINE [Concomitant]
     Active Substance: PREDNISOLONE
     Dosage: 50 MG, UNK
     Route: 042
     Dates: start: 20170512
  3. KEYTRUDA [Suspect]
     Active Substance: PEMBROLIZUMAB
     Indication: LUNG ADENOCARCINOMA
     Dosage: 200 MG, Q3W
     Route: 041
     Dates: start: 20170405, end: 20170405
  4. PREDONINE [Concomitant]
     Active Substance: PREDNISOLONE
     Indication: ENCEPHALITIS AUTOIMMUNE
     Dosage: 60 MG, UNK
     Route: 042
     Dates: start: 20170424
  5. PREDONINE [Concomitant]
     Active Substance: PREDNISOLONE
     Dosage: 60 MG, UNK
     Route: 042
     Dates: start: 20170502, end: 20170503
  6. SOL?MELCORT [Concomitant]
     Active Substance: METHYLPREDNISOLONE SODIUM SUCCINATE
     Dosage: 1 G, TID
     Route: 051
     Dates: start: 20170429, end: 20170501

REACTIONS (3)
  - Encephalitis autoimmune [Recovered/Resolved with Sequelae]
  - Gastrointestinal perforation [Unknown]
  - Ileus paralytic [Recovering/Resolving]

NARRATIVE: CASE EVENT DATE: 20170421
